FAERS Safety Report 20895448 (Version 1)
Quarter: 2022Q2

REPORT INFORMATION
  Report Type: Spontaneous
  Country: US (occurrence: None)
  Receive Date: 20220528
  Receipt Date: 20220528
  Transmission Date: 20220721
  Serious: No
  Sender: FDA-Public Use
  Company Number: None

PATIENT
  Age: 64 Year
  Sex: Male
  Weight: 66.6 kg

DRUGS (8)
  1. SUNOSI [Suspect]
     Active Substance: SOLRIAMFETOL
     Indication: Narcolepsy
     Dosage: OTHER QUANTITY : 150 TABLET(S);?
     Route: 048
  2. PITOLISANT [Concomitant]
     Active Substance: PITOLISANT
  3. SUNOSI [Concomitant]
     Active Substance: SOLRIAMFETOL
  4. METHYLPHENIDATE [Concomitant]
     Active Substance: METHYLPHENIDATE
  5. PROVIGIL [Concomitant]
     Active Substance: MODAFINIL
  6. TADALAFIL [Concomitant]
     Active Substance: TADALAFIL
  7. VITAMIN D3 [Concomitant]
     Active Substance: CHOLECALCIFEROL
  8. IRON [Concomitant]
     Active Substance: IRON

REACTIONS (3)
  - Product dispensing error [None]
  - Product dispensing error [None]
  - Product use complaint [None]

NARRATIVE: CASE EVENT DATE: 20220419
